FAERS Safety Report 5148105-4 (Version None)
Quarter: 2006Q4

REPORT INFORMATION
  Report Type: 
  Country: None (occurrence: None)
  Receive Date: 20061110
  Receipt Date: 20060804
  Transmission Date: 20070319
  Serious: Yes (Hospitalization)
  Sender: FDA-Public Use
  Company Number: US-ROCHE-458674

PATIENT
  Age: 24 Year
  Sex: Male
  Weight: 81.6 kg

DRUGS (4)
  1. ACCUTANE [Suspect]
     Indication: ACNE
     Route: 048
     Dates: start: 19891213
  2. ACCUTANE [Suspect]
     Route: 048
     Dates: start: 19910123, end: 19910415
  3. ACCUTANE [Suspect]
     Route: 048
     Dates: start: 19920205, end: 19920315
  4. ERYTHROMYCIN [Concomitant]
     Indication: ACNE

REACTIONS (25)
  - ASCITES [None]
  - AUTOIMMUNE HEPATITIS [None]
  - BACTERAEMIA [None]
  - CHOLECYSTITIS [None]
  - CHOLELITHIASIS [None]
  - CHRONIC HEPATIC FAILURE [None]
  - COAGULOPATHY [None]
  - CRYPTOGENIC CIRRHOSIS [None]
  - DUODENITIS [None]
  - ENCEPHALOPATHY [None]
  - EPISTAXIS [None]
  - EPSTEIN-BARR VIRUS ANTIBODY POSITIVE [None]
  - GASTRIC VARICES [None]
  - HEPATOCELLULAR DAMAGE [None]
  - LIVER TRANSPLANT [None]
  - NORMOCHROMIC NORMOCYTIC ANAEMIA [None]
  - PERITONITIS BACTERIAL [None]
  - PORTAL HYPERTENSION [None]
  - SEPSIS [None]
  - SPLENOMEGALY [None]
  - STREPTOCOCCAL INFECTION [None]
  - STREPTOCOCCAL SEPSIS [None]
  - THROMBOCYTOPENIA [None]
  - VARICES OESOPHAGEAL [None]
  - WEIGHT INCREASED [None]
